FAERS Safety Report 15155587 (Version 1)
Quarter: 2018Q3

REPORT INFORMATION
  Report Type: Spontaneous
  Country: BR (occurrence: BR)
  Receive Date: 20180717
  Receipt Date: 20180717
  Transmission Date: 20181010
  Serious: Yes (Other)
  Sender: FDA-Public Use
  Company Number: BR-B.I. PHARMACEUTICALS,INC./RIDGEFIELD-2018-BI-036268

PATIENT
  Sex: Male
  Weight: 39 kg

DRUGS (3)
  1. SERTRALINE [Concomitant]
     Active Substance: SERTRALINE HYDROCHLORIDE
     Indication: DYSKINESIA
     Route: 048
     Dates: start: 201801
  2. ATENSINA [Suspect]
     Active Substance: CLONIDINE
     Indication: INSOMNIA
     Route: 048
  3. RISPERIDONA [Concomitant]
     Active Substance: RISPERIDONE
     Indication: DISTURBANCE IN ATTENTION
     Dosage: UNIT DOSE :1 NOT REPORTED
     Route: 048
     Dates: start: 201804

REACTIONS (3)
  - Off label use [Unknown]
  - Drug administered to patient of inappropriate age [Unknown]
  - Drug dependence [Unknown]
